FAERS Safety Report 12132108 (Version 1)
Quarter: 2016Q1

REPORT INFORMATION
  Report Type: Spontaneous
  Country: None (occurrence: US)
  Receive Date: 20160301
  Receipt Date: 20160301
  Transmission Date: 20160526
  Serious: No
  Sender: FDA-Public Use
  Company Number: US-MERZ NORTH AMERICA, INC.-16MRZ-00162

PATIENT
  Age: 53 Year
  Sex: Male

DRUGS (1)
  1. XEOMIN [Suspect]
     Active Substance: INCOBOTULINUMTOXINA
     Indication: PRODUCT USED FOR UNKNOWN INDICATION
     Dosage: 200 UNITS EVERY 3 MONTHS
     Dates: start: 20120813, end: 20160209

REACTIONS (1)
  - Eyelid ptosis [None]

NARRATIVE: CASE EVENT DATE: 20160210
